FAERS Safety Report 11246409 (Version 9)
Quarter: 2016Q4

REPORT INFORMATION
  Report Type: Report from Study
  Country: US (occurrence: US)
  Receive Date: 20150708
  Receipt Date: 20161028
  Transmission Date: 20170206
  Serious: No
  Sender: FDA-Public Use
  Company Number: PHHY2015US041323

PATIENT
  Age: 63 Year
  Sex: Female

DRUGS (8)
  1. FORTEO [Concomitant]
     Active Substance: TERIPARATIDE
     Indication: OSTEOPOROSIS
     Dosage: 20 MCG/ML, QHS
     Route: 058
     Dates: start: 20140319
  2. DEXA//DEXAMETHASONE [Concomitant]
     Indication: MACULAR OEDEMA
     Dosage: 2 MG, UNK
     Route: 048
     Dates: start: 20140319
  3. ENABLEX//DARIFENACIN HYDROBROMIDE [Concomitant]
     Indication: HYPERTONIC BLADDER
     Dosage: 15 MG, UNK
     Route: 065
     Dates: start: 20071029
  4. GILENYA [Suspect]
     Active Substance: FINGOLIMOD HYDROCHLORIDE
     Indication: MULTIPLE SCLEROSIS
     Route: 048
  5. ASPIRIN                            /00346701/ [Concomitant]
     Active Substance: ASCORBIC ACID\ASPIRIN
     Indication: HYPERTENSION
     Dosage: 81 MG, QD
     Route: 065
     Dates: start: 20140319
  6. CARBAMAZEPINE. [Concomitant]
     Active Substance: CARBAMAZEPINE
     Indication: MULTIPLE SCLEROSIS
     Dosage: 100 MG, TID
     Route: 048
     Dates: start: 20110605
  7. METOPROLOL. [Concomitant]
     Active Substance: METOPROLOL
     Indication: PRODUCT USED FOR UNKNOWN INDICATION
     Dosage: 50 MG, UNK
     Route: 065
     Dates: start: 20100524
  8. KLOR-CON [Concomitant]
     Active Substance: POTASSIUM CHLORIDE
     Indication: HYPOKALAEMIA
     Dosage: 20 MEQ, QHS
     Route: 048
     Dates: start: 20140319

REACTIONS (30)
  - Hypothyroidism [Unknown]
  - Pain in extremity [Unknown]
  - Fatigue [Unknown]
  - Viral upper respiratory tract infection [Recovered/Resolved]
  - Protein total decreased [Unknown]
  - Blood albumin decreased [Unknown]
  - Vitreous floaters [Unknown]
  - Vertigo [Unknown]
  - Nasopharyngitis [Recovered/Resolved]
  - Body tinea [Recovered/Resolved]
  - Neutrophil count increased [Unknown]
  - Dysgeusia [Unknown]
  - Tremor [Not Recovered/Not Resolved]
  - White blood cell count decreased [Unknown]
  - Lymphopenia [Unknown]
  - Blood calcium decreased [Unknown]
  - Headache [Unknown]
  - Salivary gland enlargement [Recovered/Resolved]
  - Muscle spasticity [Unknown]
  - Muscle spasms [Not Recovered/Not Resolved]
  - Dysphagia [Recovered/Resolved]
  - Myalgia [Not Recovered/Not Resolved]
  - Hypogeusia [Unknown]
  - Eye infection [Unknown]
  - Blood bilirubin increased [Unknown]
  - Hyposmia [Unknown]
  - Tinea infection [Recovered/Resolved]
  - Oedema peripheral [Unknown]
  - Constipation [Unknown]
  - Weight increased [Unknown]

NARRATIVE: CASE EVENT DATE: 20141221
